FAERS Safety Report 4941887-3 (Version None)
Quarter: 2006Q1

REPORT INFORMATION
  Report Type: 
  Country: None (occurrence: None)
  Receive Date: 20060307
  Receipt Date: 20060223
  Transmission Date: 20060701
  Serious: Yes (Death, Life-Threatening, Hospitalization)
  Sender: FDA-Public Use
  Company Number: 200610114BWH

PATIENT
  Age: 77 Year
  Sex: Male
  Weight: 76.2043 kg

DRUGS (13)
  1. SORAFENIB [Suspect]
     Indication: METASTATIC RENAL CELL CARCINOMA
     Dosage: SEE IMAGE
     Route: 048
     Dates: start: 20051216, end: 20060105
  2. SORAFENIB [Suspect]
     Indication: METASTATIC RENAL CELL CARCINOMA
     Dosage: SEE IMAGE
     Route: 048
     Dates: start: 20060109, end: 20060207
  3. COREG [Concomitant]
  4. PREDNISONE [Concomitant]
  5. LASIX [Concomitant]
  6. OMNICEF [Concomitant]
  7. ASPIRIN [Concomitant]
  8. FLOMAX MR ^YAMANOUCHI^ [Concomitant]
  9. GLUCOPHAGE [Concomitant]
  10. GLIPIZIDE [Concomitant]
  11. ACETAMINOPHEN W/ CODEINE [Concomitant]
  12. PERIACTIN [Concomitant]
  13. AMBIEN [Concomitant]

REACTIONS (9)
  - ATRIAL FIBRILLATION [None]
  - CARDIAC FAILURE CONGESTIVE [None]
  - CARDIOMEGALY [None]
  - ELECTROCARDIOGRAM T WAVE ABNORMAL [None]
  - PLEURAL EFFUSION [None]
  - PNEUMONIA [None]
  - PNEUMOTHORAX [None]
  - PULMONARY OEDEMA [None]
  - RESPIRATORY FAILURE [None]
